FAERS Safety Report 5888065-1 (Version None)
Quarter: 2008Q3

REPORT INFORMATION
  Report Type: 
  Country: None (occurrence: None)
  Receive Date: 20080916
  Receipt Date: 20080908
  Transmission Date: 20090109
  Serious: Yes (Hospitalization)
  Sender: FDA-Public Use
  Company Number: 2008BI018051

PATIENT
  Age: 49 Year
  Sex: Female

DRUGS (1)
  1. TYSABRI [Suspect]
     Indication: MULTIPLE SCLEROSIS
     Dosage: 300 MG;QM;IV
     Route: 042
     Dates: start: 20071001

REACTIONS (9)
  - BASAL CELL CARCINOMA [None]
  - BLOOD PRESSURE DECREASED [None]
  - CANDIDIASIS [None]
  - CLOSTRIDIUM DIFFICILE COLITIS [None]
  - DISEASE RECURRENCE [None]
  - MULTIPLE SCLEROSIS [None]
  - RENAL IMPAIRMENT [None]
  - SPUTUM CULTURE POSITIVE [None]
  - URINARY TRACT INFECTION ENTEROCOCCAL [None]
